FAERS Safety Report 10959295 (Version 1)
Quarter: 2015Q1

REPORT INFORMATION
  Report Type: Spontaneous
  Country: US (occurrence: US)
  Receive Date: 20150327
  Receipt Date: 20150327
  Transmission Date: 20150721
  Serious: Yes (Death)
  Sender: FDA-Public Use
  Company Number: US-CIPLA LTD.-2015US02401

PATIENT

DRUGS (6)
  1. LORAZEPAM. [Suspect]
     Active Substance: LORAZEPAM
  2. LAMOTRIGINE. [Suspect]
     Active Substance: LAMOTRIGINE
  3. ESCITALOPRAM [Suspect]
     Active Substance: ESCITALOPRAM OXALATE
  4. BENZTROPINE [Suspect]
     Active Substance: BENZTROPINE
  5. PRIMIDONE. [Suspect]
     Active Substance: PRIMIDONE
  6. TEMAZEPAM. [Suspect]
     Active Substance: TEMAZEPAM

REACTIONS (1)
  - Completed suicide [Fatal]
